FAERS Safety Report 7539568-5 (Version None)
Quarter: 2011Q2

REPORT INFORMATION
  Report Type: 
  Country: None (occurrence: None)
  Receive Date: 20110610
  Receipt Date: 20110526
  Transmission Date: 20111010
  Serious: No
  Sender: FDA-Public Use
  Company Number: US-B.I. PHARMACEUTICALS,INC./RIDGEFIELD-2011-BP-14090BP

PATIENT
  Age: 82 Year
  Sex: Female

DRUGS (2)
  1. MICARDIS [Suspect]
     Indication: HYPERTENSION
     Dosage: 40 MG
     Route: 048
     Dates: start: 20080101, end: 20110501
  2. MICARDIS [Suspect]
     Dosage: 20 MG
     Route: 048
     Dates: start: 20110501

REACTIONS (2)
  - BLOOD PRESSURE FLUCTUATION [None]
  - RHINITIS [None]
